FAERS Safety Report 16517796 (Version 2)
Quarter: 2019Q3

REPORT INFORMATION
  Report Type: Spontaneous
  Country: CN (occurrence: CN)
  Receive Date: 20190702
  Receipt Date: 20190703
  Transmission Date: 20191004
  Serious: Yes (Other)
  Sender: FDA-Public Use
  Company Number: CN-009507513-1907CHN000306

PATIENT
  Age: 66 Year
  Sex: Male

DRUGS (1)
  1. SINGULAIR [Suspect]
     Active Substance: MONTELUKAST SODIUM
     Indication: PRODUCTIVE COUGH
     Dosage: 10 MG/ONE PILL, TID
     Route: 048
     Dates: start: 20190616, end: 20190620

REACTIONS (5)
  - Somnolence [Unknown]
  - Product use issue [Unknown]
  - Lethargy [Recovering/Resolving]
  - Product use in unapproved indication [Unknown]
  - Unresponsive to stimuli [Recovering/Resolving]

NARRATIVE: CASE EVENT DATE: 201906
